FAERS Safety Report 17951396 (Version 1)
Quarter: 2020Q2

REPORT INFORMATION
  Report Type: Spontaneous
  Country: US (occurrence: US)
  Receive Date: 20200626
  Receipt Date: 20200626
  Transmission Date: 20200714
  Serious: Yes (Death)
  Sender: FDA-Public Use
  Company Number: US-VERO BIOTECH-2086716

PATIENT
  Age: 7 Decade
  Sex: Female

DRUGS (1)
  1. GENOSYL [Suspect]
     Active Substance: NITRIC OXIDE
     Indication: COVID-19
     Route: 055

REACTIONS (4)
  - Coagulopathy [Fatal]
  - Anaemic hypoxia [Fatal]
  - Pulmonary embolism [Fatal]
  - Cardiac arrest [Fatal]
